FAERS Safety Report 5400329-4 (Version None)
Quarter: 2007Q3

REPORT INFORMATION
  Report Type: 
  Country: None (occurrence: None)
  Receive Date: 20070730
  Receipt Date: 20070718
  Transmission Date: 20080115
  Serious: Yes (Hospitalization)
  Sender: FDA-Public Use
  Company Number: DE-AMGEN-UK235680

PATIENT
  Age: 49 Year
  Sex: Male

DRUGS (1)
  1. FILGRASTIM [Suspect]
     Indication: BLOOD STEM CELL HARVEST
     Route: 058

REACTIONS (6)
  - CHEST DISCOMFORT [None]
  - COUGH [None]
  - HAEMOPTYSIS [None]
  - LUNG INFILTRATION [None]
  - PULMONARY HAEMORRHAGE [None]
  - PYREXIA [None]
